FAERS Safety Report 5961046-5 (Version None)
Quarter: 2008Q4

REPORT INFORMATION
  Report Type: 
  Country: None (occurrence: None)
  Receive Date: 20081119
  Receipt Date: 20081105
  Transmission Date: 20090506
  Serious: Yes (Hospitalization)
  Sender: FDA-Public Use
  Company Number: 2008US002915

PATIENT
  Age: 45 Year
  Sex: Female

DRUGS (11)
  1. ALEFACEPT(ALEFACEPT) INJECTION [Suspect]
     Indication: RENAL TRANSPLANT
     Dosage: 7.5 MG, WEEKLY, SUBCUTANEOUS
     Route: 058
     Dates: start: 20080828, end: 20080911
  2. PROGRAF [Suspect]
     Indication: RENAL TRANSPLANT
     Dosage: 1 MG, BID, ORAL; 4 MG, UID/QD, ORAL
     Route: 048
     Dates: start: 20080910
  3. PROGRAF [Suspect]
     Indication: RENAL TRANSPLANT
     Dosage: 1 MG, BID, ORAL; 4 MG, UID/QD, ORAL
     Route: 048
     Dates: start: 20081007
  4. PREDNISOLONE ACETATE [Concomitant]
  5. VALGANCICLOVIR HCL [Concomitant]
  6. SODIUM BICARBONATE IN PLASTIC CONTAINER [Concomitant]
  7. PROZAC [Concomitant]
  8. EFFEXOR [Concomitant]
  9. NEURONTIN [Concomitant]
  10. ARANESP [Concomitant]
  11. MIRAPEX [Concomitant]

REACTIONS (1)
  - DIABETIC KETOACIDOSIS [None]
